FAERS Safety Report 23054910 (Version 1)
Quarter: 2023Q4

REPORT INFORMATION
  Report Type: Spontaneous
  Country: US (occurrence: None)
  Receive Date: 20231010
  Receipt Date: 20231010
  Transmission Date: 20240110
  Serious: No
  Sender: FDA-Public Use
  Company Number: None

PATIENT
  Sex: Male

DRUGS (1)
  1. VIJOICE [Suspect]
     Active Substance: ALPELISIB
     Indication: Anal cancer

REACTIONS (5)
  - Blood glucose increased [None]
  - Metastases to lung [None]
  - Pulmonary mass [None]
  - Glomerular filtration rate decreased [None]
  - Platelet count decreased [None]
